FAERS Safety Report 13089339 (Version 1)
Quarter: 2017Q1

REPORT INFORMATION
  Report Type: Report from Study
  Country: US (occurrence: US)
  Receive Date: 20170105
  Receipt Date: 20170105
  Transmission Date: 20170428
  Serious: Yes (Other)
  Sender: FDA-Public Use
  Company Number: US-PFIZER INC-2016605205

PATIENT

DRUGS (5)
  1. DOCETAXEL. [Suspect]
     Active Substance: DOCETAXEL
     Dosage: 35 MG/M2, CYCLIC ( L3, (FOR 3 CONSECUTIVE WEEKS OF A 4 WEEK CYCLE))
     Route: 042
  2. CARBOPLATIN. [Suspect]
     Active Substance: CARBOPLATIN
     Indication: SQUAMOUS CELL CARCINOMA OF THE CERVIX
     Dosage: UNK UNK, CYCLIC, AUC2
  3. DOCETAXEL. [Suspect]
     Active Substance: DOCETAXEL
     Dosage: 30 MG/M2, CYCLIC (L2 (FOR 3 CONSECUTIVE WEEKS OF A 4 WEEK CYCLE))
     Route: 042
  4. DOCETAXEL. [Suspect]
     Active Substance: DOCETAXEL
     Indication: SQUAMOUS CELL CARCINOMA OF THE CERVIX
     Dosage: 25 MG/M2, CYCLIC, L1, (FOR 3 CONSECUTIVE WEEKS OF A 4 WEEK CYCLE).
     Route: 042
  5. DOCETAXEL. [Suspect]
     Active Substance: DOCETAXEL
     Dosage: 40 MG/M2, CYCLIC ( L4, (FOR 3 CONSECUTIVE WEEKS OF A 4 WEEK CYCLE))
     Route: 042

REACTIONS (1)
  - Onycholysis [Unknown]
